FAERS Safety Report 5674071-9 (Version None)
Quarter: 2008Q1

REPORT INFORMATION
  Report Type: 
  Country: None (occurrence: None)
  Receive Date: 20080317
  Receipt Date: 20080310
  Transmission Date: 20080703
  Serious: Yes (Death, Life-Threatening, Disabling, Other)
  Sender: FDA-Public Use
  Company Number: 2006SP008692

PATIENT
  Age: 47 Year
  Sex: Male
  Weight: 75 kg

DRUGS (11)
  1. TEMODAL [Suspect]
     Indication: GLIOBLASTOMA MULTIFORME
     Dosage: 75 MG/M2;QD;PO
     Route: 048
     Dates: start: 20061022, end: 20061204
  2. TEGRETOL [Concomitant]
  3. GLYCEOL [Concomitant]
  4. RINDERON [Concomitant]
  5. FAMOTIDINE [Concomitant]
  6. ZOFRAN [Concomitant]
  7. MENILET [Concomitant]
  8. ACHROMYCIN [Concomitant]
  9. ALESION [Concomitant]
  10. MAGNESIUM OXIDE [Concomitant]
  11. ALOSENN [Concomitant]

REACTIONS (6)
  - ASTHENIA [None]
  - DISEASE PROGRESSION [None]
  - HYPOGAMMAGLOBULINAEMIA [None]
  - NASOPHARYNGITIS [None]
  - PNEUMOCYSTIS JIROVECI PNEUMONIA [None]
  - PULMONARY FIBROSIS [None]
